FAERS Safety Report 7286844-X (Version None)
Quarter: 2011Q1

REPORT INFORMATION
  Report Type: 
  Country: None (occurrence: None)
  Receive Date: 20110210
  Receipt Date: 20110204
  Transmission Date: 20110831
  Serious: Yes (Hospitalization)
  Sender: FDA-Public Use
  Company Number: BE-BRISTOL-MYERS SQUIBB COMPANY-15531213

PATIENT
  Age: 67 Year
  Sex: Male
  Weight: 73 kg

DRUGS (8)
  1. INDAPAMIDE [Concomitant]
  2. GEMCITABINE HCL [Suspect]
     Indication: NON-SMALL CELL LUNG CANCER
     Dosage: LAST ADMIN ON11JAN11
     Route: 065
     Dates: start: 20110104
  3. MEDROL [Concomitant]
     Dates: start: 20101115
  4. DAFALGAN [Concomitant]
     Dates: start: 20101101
  5. CISPLATIN [Suspect]
     Indication: NON-SMALL CELL LUNG CANCER
     Dosage: LAST RECIEVED ON 04JAN11
     Route: 065
     Dates: start: 20110104
  6. NECITUMUMAB [Suspect]
     Indication: NON-SMALL CELL LUNG CANCER
     Route: 065
     Dates: start: 20110104
  7. IBRUPROFEN [Concomitant]
     Dates: start: 20101115
  8. COVERSYL [Concomitant]
     Dates: start: 20101228

REACTIONS (2)
  - HAEMATOCHEZIA [None]
  - DIARRHOEA [None]
